FAERS Safety Report 23495226 (Version 1)
Quarter: 2024Q1

REPORT INFORMATION
  Report Type: Spontaneous
  Country: JP (occurrence: JP)
  Receive Date: 20240207
  Receipt Date: 20240207
  Transmission Date: 20240410
  Serious: Yes (Other)
  Sender: FDA-Public Use
  Company Number: A202300545-004

PATIENT
  Age: 60 Year

DRUGS (2)
  1. BENDAMUSTINE HYDROCHLORIDE [Suspect]
     Active Substance: BENDAMUSTINE HYDROCHLORIDE
     Indication: Follicular lymphoma
     Dosage: 90 MG/M2, CYCLE 1 GB THERAPY
     Route: 042
  2. GAZYVA [Suspect]
     Active Substance: OBINUTUZUMAB
     Indication: Follicular lymphoma
     Dosage: UNK, CYCLE 1 GB THERAPY
     Route: 042

REACTIONS (2)
  - Interstitial lung disease [Not Recovered/Not Resolved]
  - Drug eruption [Not Recovered/Not Resolved]
